FAERS Safety Report 5704013-9 (Version None)
Quarter: 2008Q2

REPORT INFORMATION
  Report Type: 
  Country: None (occurrence: None)
  Receive Date: 20080414
  Receipt Date: 20080402
  Transmission Date: 20081010
  Serious: Yes (Death)
  Sender: FDA-Public Use
  Company Number: MX-NOVOPROD-273151

PATIENT
  Sex: Male
  Weight: 82.6 kg

DRUGS (5)
  1. LEVEMIR [Suspect]
     Indication: INSULIN-REQUIRING TYPE 2 DIABETES MELLITUS
     Dosage: 18 IU, QD
  2. LEVEMIR [Suspect]
     Dosage: 26 IU, QD
     Dates: end: 20071204
  3. FUROSEMIDE [Concomitant]
  4. TERBUTALINA [Concomitant]
  5. IRON [Concomitant]

REACTIONS (1)
  - HEPATIC ENCEPHALOPATHY [None]
